FAERS Safety Report 5072836-8 (Version None)
Quarter: 2006Q3

REPORT INFORMATION
  Report Type: 
  Country: None (occurrence: None)
  Receive Date: 20060802
  Receipt Date: 20060724
  Transmission Date: 20061208
  Serious: Yes (Death)
  Sender: FDA-Public Use
  Company Number: 2006-07-1249

PATIENT
  Age: 56 Year
  Sex: Female
  Weight: 49 kg

DRUGS (5)
  1. TEMOZOLOMIDE CAPSULES [Suspect]
     Indication: GLIOBLASTOMA MULTIFORME
     Dosage: 75-150 MG/M2* ORAL
     Route: 048
     Dates: start: 20060223, end: 20060712
  2. RADIATION THERAPY [Concomitant]
  3. PREDONINE TABLETS [Concomitant]
  4. ZONEGRAN [Concomitant]
  5. TAKEPRON (LANSOPRAZOLE) TABLETS [Concomitant]

REACTIONS (4)
  - ANOREXIA [None]
  - CARDIO-RESPIRATORY ARREST [None]
  - PULMONARY EMBOLISM [None]
  - STRESS [None]
